FAERS Safety Report 6266881-4 (Version None)
Quarter: 2009Q3

REPORT INFORMATION
  Report Type: 
  Country: None (occurrence: None)
  Receive Date: 20090714
  Receipt Date: 20090709
  Transmission Date: 20100115
  Serious: Yes (Other)
  Sender: FDA-Public Use
  Company Number: AU-ALLERGAN-0909641US

PATIENT
  Age: 61 Year
  Sex: Female

DRUGS (2)
  1. FML [Suspect]
     Indication: DRY EYE
     Dosage: 1 GTT, QD
     Route: 047
     Dates: start: 20090407, end: 20090411
  2. FML [Suspect]
     Dosage: 1 GTT, QD
     Route: 047
     Dates: start: 20090529, end: 20090603

REACTIONS (3)
  - CHEST PAIN [None]
  - DYSPEPSIA [None]
  - MUSCULAR WEAKNESS [None]
